APPROVED DRUG PRODUCT: QUINIDINE SULFATE
Active Ingredient: QUINIDINE SULFATE
Strength: 200MG
Dosage Form/Route: TABLET;ORAL
Application: A088973 | Product #001
Applicant: SUPERPHARM CORP
Approved: Apr 10, 1985 | RLD: No | RS: No | Type: DISCN